FAERS Safety Report 10246745 (Version 1)
Quarter: 2014Q2

REPORT INFORMATION
  Report Type: Spontaneous
  Country: US (occurrence: None)
  Receive Date: 20140617
  Receipt Date: 20140617
  Transmission Date: 20141212
  Serious: No
  Sender: FDA-Public Use
  Company Number: None

PATIENT
  Age: 25 Year
  Sex: Female
  Weight: 95.71 kg

DRUGS (1)
  1. TAMSULOSIN 0.4 MG [Suspect]
     Indication: NEPHROLITHIASIS
     Dosage: 1 CAPSULE AT BEDTIME TAKEN BY MOUTH
     Route: 048

REACTIONS (1)
  - Pulmonary congestion [None]
